FAERS Safety Report 10078774 (Version 1)
Quarter: 2014Q2

REPORT INFORMATION
  Report Type: Spontaneous
  Country: US (occurrence: None)
  Receive Date: 20140414
  Receipt Date: 20140414
  Transmission Date: 20141212
  Serious: Yes (Hospitalization)
  Sender: FDA-Public Use
  Company Number: None

PATIENT
  Age: 3 Year
  Sex: Female
  Weight: 13.4 kg

DRUGS (1)
  1. VINCRISTINE SULFATE [Suspect]

REACTIONS (5)
  - Abscess bacterial [None]
  - Anaemia [None]
  - Sinus tachycardia [None]
  - Constipation [None]
  - Intestinal perforation [None]
